FAERS Safety Report 9916905 (Version 1)
Quarter: 2014Q1

REPORT INFORMATION
  Report Type: Spontaneous
  Country: US (occurrence: US)
  Receive Date: 20140221
  Receipt Date: 20140221
  Transmission Date: 20141002
  Serious: No
  Sender: FDA-Public Use
  Company Number: US-009507513-1402USA003976

PATIENT
  Sex: Male

DRUGS (7)
  1. ISENTRESS [Suspect]
     Indication: HIV TEST
     Dosage: 400 MG, BID
     Route: 048
     Dates: start: 2010
  2. ALPRAZOLAM [Concomitant]
     Dosage: UNK
  3. PAROXETINE [Concomitant]
     Dosage: UNK
  4. TRUVADA [Concomitant]
     Dosage: UNK
  5. PRILOSEC [Concomitant]
     Dosage: UNK
     Route: 048
  6. ASPIRIN [Concomitant]
     Dosage: UNK
  7. NAPROXEN [Concomitant]
     Dosage: UNK

REACTIONS (3)
  - Dementia Alzheimer^s type [Unknown]
  - Judgement impaired [Unknown]
  - Amnesia [Unknown]
